FAERS Safety Report 6695353-8 (Version None)
Quarter: 2010Q2

REPORT INFORMATION
  Report Type: 
  Country: None (occurrence: None)
  Receive Date: 20100423
  Receipt Date: 20100423
  Transmission Date: 20101027
  Serious: Yes (Hospitalization)
  Sender: FDA-Public Use
  Company Number: None

PATIENT
  Age: 76 Year
  Sex: Female
  Weight: 69.5 kg

DRUGS (15)
  1. ASPIRIN [Suspect]
     Indication: CARDIOVASCULAR DISORDER
     Dosage: 325 MG DAILY PO ; CHRONIC
     Route: 048
  2. ASPIRIN [Suspect]
     Indication: PROPHYLAXIS
     Dosage: 325 MG DAILY PO ; CHRONIC
     Route: 048
  3. COREG [Concomitant]
  4. AMLODIPINE [Concomitant]
  5. CARAFATE [Concomitant]
  6. REGLAN [Concomitant]
  7. ZOCOR [Concomitant]
  8. REMERON [Concomitant]
  9. LEVOTHYROXINE SODIUM [Concomitant]
  10. OMEPRAZOLE [Concomitant]
  11. CALCITRIOL [Concomitant]
  12. LASIX [Concomitant]
  13. CATAPRES [Concomitant]
  14. CETRA [Concomitant]
  15. HYDRALAZINE/ISOSORBIDE DINITRATE [Suspect]

REACTIONS (4)
  - GASTROINTESTINAL HAEMORRHAGE [None]
  - HAEMATEMESIS [None]
  - IMPAIRED GASTRIC EMPTYING [None]
  - OESOPHAGEAL SPASM [None]
